FAERS Safety Report 23288903 (Version 2)
Quarter: 2024Q1

REPORT INFORMATION
  Report Type: Spontaneous
  Country: US (occurrence: US)
  Receive Date: 20231212
  Receipt Date: 20240311
  Transmission Date: 20240410
  Serious: No
  Sender: FDA-Public Use
  Company Number: US-Calliditas-2023CAL01544

PATIENT
  Age: 36 Year
  Sex: Male

DRUGS (1)
  1. TARPEYO [Suspect]
     Active Substance: BUDESONIDE
     Indication: IgA nephropathy
     Dosage: 16 MG (4 MG CAPSULES) ONCE DAILY
     Route: 048
     Dates: start: 20231031

REACTIONS (8)
  - Fatigue [Not Recovered/Not Resolved]
  - Feeling cold [Unknown]
  - Memory impairment [Unknown]
  - Brain fog [Unknown]
  - Pain in extremity [Unknown]
  - Affect lability [Unknown]
  - Blood pressure increased [Unknown]
  - Vitamin B12 deficiency [Unknown]
